FAERS Safety Report 24015510 (Version 1)
Quarter: 2024Q2

REPORT INFORMATION
  Report Type: Spontaneous
  Country: CN (occurrence: CN)
  Receive Date: 20240626
  Receipt Date: 20240626
  Transmission Date: 20240716
  Serious: Yes (Hospitalization)
  Sender: FDA-Public Use
  Company Number: CN-SHANGHAI JUNSHI BIOSCIENCES CO., LTD.-CN2024010365

PATIENT

DRUGS (3)
  1. TORIPALIMAB [Suspect]
     Active Substance: TORIPALIMAB
     Indication: Bladder transitional cell carcinoma recurrent
     Dosage: A TOTAL OF 20 CYCLES
  2. GEMCITABINE [Concomitant]
     Active Substance: GEMCITABINE
     Indication: Bladder transitional cell carcinoma recurrent
     Dosage: UNK
  3. CISPLATIN [Concomitant]
     Active Substance: CISPLATIN
     Indication: Bladder transitional cell carcinoma recurrent
     Dosage: UNK

REACTIONS (2)
  - Vogt-Koyanagi-Harada disease [Recovered/Resolved]
  - Uveitis [Recovered/Resolved]

NARRATIVE: CASE EVENT DATE: 20220624
